FAERS Safety Report 14415169 (Version 1)
Quarter: 2018Q1

REPORT INFORMATION
  Report Type: Spontaneous
  Country: FR (occurrence: FR)
  Receive Date: 20180121
  Receipt Date: 20180121
  Transmission Date: 20180509
  Serious: Yes (Disabling)
  Sender: FDA-Public Use
  Company Number: FR-MERCK KGAA-2040414

PATIENT
  Age: 46 Year
  Sex: Female
  Weight: 67 kg

DRUGS (1)
  1. NOVOTHYROX [Suspect]
     Active Substance: LEVOTHYROXINE SODIUM
     Indication: THYROIDECTOMY
     Route: 048
     Dates: start: 20170515, end: 20171220

REACTIONS (4)
  - Diffuse alopecia [Unknown]
  - Fatigue [Unknown]
  - Vertigo [Unknown]
  - Muscle spasms [Unknown]

NARRATIVE: CASE EVENT DATE: 201707
